FAERS Safety Report 17780235 (Version 1)
Quarter: 2020Q2

REPORT INFORMATION
  Report Type: Spontaneous
  Country: FR (occurrence: FR)
  Receive Date: 20200514
  Receipt Date: 20200514
  Transmission Date: 20200714
  Serious: Yes (Other)
  Sender: FDA-Public Use
  Company Number: FR-TEVA-2020-FR-1233713

PATIENT
  Age: 76 Year
  Sex: Female

DRUGS (14)
  1. FOLINORAL 25 MG, GELULE [Concomitant]
     Active Substance: LEUCOVORIN CALCIUM
     Dosage: 6 DOSAGE FORMS
     Route: 048
  2. PROLIA [Concomitant]
     Active Substance: DENOSUMAB
     Dosage: 60 MG
     Route: 065
  3. FUNGIZONE [Concomitant]
     Active Substance: AMPHOTERICIN B
     Dosage: 3 DOSAGE FORMS
     Route: 048
  4. LAROXYL 40 MG/ML, SOLUTION BUVABLE [Concomitant]
     Active Substance: AMITRIPTYLINE HYDROCHLORIDE
     Dosage: UNSPECIFIED
     Route: 048
  5. TRANSIPEG 5,9 G, POUDRE POUR SOLUTION BUVABLE EN SACHET [Concomitant]
     Dosage: 1 DOSAGE FORM
     Route: 048
  6. LANSOPRAZOLE. [Concomitant]
     Active Substance: LANSOPRAZOLE
     Dosage: 15 MG
     Route: 048
  7. OXYCODONE [Concomitant]
     Active Substance: OXYCODONE
     Dosage: 1 DOSAGE FORM
     Route: 048
  8. CARBOPLATINE [Suspect]
     Active Substance: CARBOPLATIN
     Indication: SMALL CELL LUNG CANCER METASTATIC
     Dosage: UNSPECIFIED
     Dates: start: 201909, end: 202001
  9. OXYCONTIN [Concomitant]
     Active Substance: OXYCODONE HYDROCHLORIDE
     Dosage: 2 DOSAGE FORMS
     Route: 048
  10. PRINCI B [Concomitant]
     Dosage: 6 DOSAGE FORMS
     Route: 048
  11. PREGABALINE [Concomitant]
     Active Substance: PREGABALIN
     Dosage: 150 MG
     Route: 048
  12. ETOPOSIDE. [Suspect]
     Active Substance: ETOPOSIDE
     Indication: SMALL CELL LUNG CANCER METASTATIC
     Dosage: UNSPECIFIED
     Dates: start: 201909, end: 202001
  13. INNOHEP [Concomitant]
     Active Substance: TINZAPARIN SODIUM
     Dosage: 1 DOSAGE FORM
     Route: 058
  14. PREDNISOLONE. [Concomitant]
     Active Substance: PREDNISOLONE
     Dosage: 20 MG

REACTIONS (2)
  - Visual acuity reduced transiently [Not Recovered/Not Resolved]
  - Optic neuropathy [Not Recovered/Not Resolved]

NARRATIVE: CASE EVENT DATE: 201912
